FAERS Safety Report 7350059-7 (Version None)
Quarter: 2011Q1

REPORT INFORMATION
  Report Type: 
  Country: None (occurrence: None)
  Receive Date: 20110314
  Receipt Date: 20110310
  Transmission Date: 20110831
  Serious: Yes (Life-Threatening)
  Sender: FDA-Public Use
  Company Number: IT-ROCHE-764803

PATIENT
  Sex: Female

DRUGS (8)
  1. ROCALTROL [Concomitant]
     Route: 048
  2. CONGESCOR [Concomitant]
     Route: 048
  3. HUMALOG [Concomitant]
  4. EUTIROX [Concomitant]
     Route: 048
  5. BLOPRESS [Concomitant]
     Route: 048
  6. COMBIGAN [Concomitant]
  7. MIRCERA [Suspect]
     Route: 058
     Dates: start: 20100101, end: 20110301
  8. TORVAST [Concomitant]
     Route: 048

REACTIONS (1)
  - HYPOGLYCAEMIA [None]
